FAERS Safety Report 17452773 (Version 5)
Quarter: 2021Q4

REPORT INFORMATION
  Report Type: Report from Study
  Country: US (occurrence: US)
  Receive Date: 20200224
  Receipt Date: 20211122
  Transmission Date: 20220303
  Serious: Yes (Hospitalization)
  Sender: FDA-Public Use
  Company Number: US-PCYC-2018PHC29461

PATIENT
  Age: 80 Year
  Sex: Male
  Weight: 105 kg

DRUGS (33)
  1. IMBRUVICA [Suspect]
     Active Substance: IBRUTINIB
     Indication: Chronic lymphocytic leukaemia
     Dosage: 280 MG, QD
     Route: 048
     Dates: start: 20180810, end: 20181016
  2. IMBRUVICA [Suspect]
     Active Substance: IBRUTINIB
     Dosage: 420 MG, QD
     Route: 048
     Dates: start: 20180808
  3. COMBIVENT [Concomitant]
     Active Substance: ALBUTEROL SULFATE\IPRATROPIUM BROMIDE
     Indication: Product used for unknown indication
  4. METOPROLOL SUCCINATE [Concomitant]
     Active Substance: METOPROLOL SUCCINATE
     Indication: Angina pectoris
     Dosage: 25 MG, QD
     Route: 048
     Dates: start: 20180609
  5. ZOLPIDEM TARTRATE [Concomitant]
     Active Substance: ZOLPIDEM TARTRATE
     Indication: Insomnia
     Dosage: 6.25 MG, PRN
     Route: 048
     Dates: start: 20130226
  6. ASPIRIN [Concomitant]
     Active Substance: ASPIRIN
     Indication: Cardiovascular event prophylaxis
     Dosage: 81 MG, QD
     Route: 048
     Dates: start: 20180306
  7. ALBUTEROL SULFATE [Concomitant]
     Active Substance: ALBUTEROL SULFATE
     Indication: Chronic obstructive pulmonary disease
     Dosage: 103 MG, QD
     Dates: start: 20130531
  8. LANSOPRAZOLE [Concomitant]
     Active Substance: LANSOPRAZOLE
     Indication: Gastrooesophageal reflux disease
     Dosage: 30 MG, QD
     Route: 048
     Dates: start: 20130306
  9. POLYETHYLENE GLYCOL [Concomitant]
     Active Substance: POLYETHYLENE GLYCOL
     Indication: Constipation
     Dosage: 17 G, QD
     Route: 048
     Dates: start: 20160609
  10. NIACIN [Concomitant]
     Active Substance: NIACIN
     Indication: Supplementation therapy
     Dosage: 500 MG, QD
     Route: 048
     Dates: start: 20140211
  11. SIMVASTATIN [Concomitant]
     Active Substance: SIMVASTATIN
     Indication: Hyperlipidaemia
     Dosage: 40 MG, QD
     Route: 048
     Dates: start: 20130306
  12. BUDESONIDE [Concomitant]
     Active Substance: BUDESONIDE
     Indication: Chronic obstructive pulmonary disease
     Dosage: 80 MG, UNK
     Dates: start: 20160609
  13. FORMOTEROL FUMARATE [Concomitant]
     Active Substance: FORMOTEROL FUMARATE
     Indication: Chronic obstructive pulmonary disease
     Dosage: 4.5 MG, UNK
     Dates: start: 20160609
  14. LEVOTHYROXINE SODIUM [Concomitant]
     Active Substance: LEVOTHYROXINE SODIUM
     Indication: Hypothyroidism
     Dosage: 100 MCG, QD
     Route: 048
     Dates: start: 20130226
  15. MINERALS\VITAMINS [Concomitant]
     Active Substance: MINERALS\VITAMINS
     Indication: Supplementation therapy
     Dosage: UNK, QD
     Route: 048
     Dates: start: 20180707
  16. ONDANSETRON [Concomitant]
     Active Substance: ONDANSETRON
     Indication: Prophylaxis of nausea and vomiting
     Dosage: 8 MG, PRN
     Route: 048
     Dates: start: 20180810
  17. VITAMIN C [Concomitant]
     Active Substance: ASCORBIC ACID
     Indication: Supplementation therapy
     Dosage: 250 IU, QD
     Route: 048
     Dates: start: 20180315
  18. VITAMIN E [Concomitant]
     Active Substance: .ALPHA.-TOCOPHEROL
     Indication: Supplementation therapy
     Dosage: 200 IU, QD
     Route: 048
     Dates: start: 20180315
  19. ZINC [Concomitant]
     Active Substance: ZINC
     Indication: Supplementation therapy
     Dosage: 40 IU, QD
     Route: 048
     Dates: start: 20180315
  20. METHYLPREDNISOLONE [Concomitant]
     Active Substance: METHYLPREDNISOLONE
     Indication: Bronchitis
     Dosage: 60 MG, UNK
     Route: 042
     Dates: start: 20180917, end: 20180917
  21. LEVOFLOXACIN [Concomitant]
     Active Substance: LEVOFLOXACIN
     Indication: Bronchitis
     Dosage: 750 MG, UNK
     Route: 042
     Dates: start: 20180917, end: 20180917
  22. LEVOFLOXACIN [Concomitant]
     Active Substance: LEVOFLOXACIN
     Dosage: 500 MG, QD
     Route: 048
     Dates: start: 20180917, end: 20180927
  23. PREDNISONE [Concomitant]
     Active Substance: PREDNISONE
     Indication: Bronchitis
     Dosage: 20 MG, QD
     Route: 048
     Dates: start: 20180917, end: 20180922
  24. FLUTICASONE [Concomitant]
     Active Substance: FLUTICASONE
     Indication: Chronic obstructive pulmonary disease
     Dosage: 100 MG, BID
     Dates: start: 20181016
  25. SALMETEROL [Concomitant]
     Active Substance: SALMETEROL
     Indication: Chronic obstructive pulmonary disease
     Dosage: 50 MG, BID
     Dates: start: 20181016
  26. GUAIFENESIN [Concomitant]
     Active Substance: GUAIFENESIN
     Indication: Bronchitis
     Dosage: 600 MG, QD
     Route: 048
     Dates: start: 20181016
  27. DEXTROMETHORPHAN [Concomitant]
     Active Substance: DEXTROMETHORPHAN
     Indication: Bronchitis
     Dosage: 30 MG, BID
     Route: 048
     Dates: start: 20181016
  28. FERROUS SULFATE [Concomitant]
     Active Substance: FERROUS SULFATE
     Indication: Iron deficiency anaemia
     Dosage: 325 MG, BID
     Route: 048
     Dates: start: 20181025
  29. CYANOCOBALAMIN [Concomitant]
     Active Substance: CYANOCOBALAMIN
     Indication: Iron deficiency anaemia
     Dosage: 2500 MCG, QOD
     Route: 048
     Dates: start: 20181016
  30. CETIRIZINE HCL [Concomitant]
     Active Substance: CETIRIZINE HYDROCHLORIDE
     Indication: Chronic sinusitis
     Dosage: 10 MG, QD
     Route: 048
     Dates: start: 20181016
  31. OXYGEN [Concomitant]
     Active Substance: OXYGEN
     Indication: Chronic obstructive pulmonary disease
     Dosage: 2 L, UNK
     Dates: start: 20181016
  32. VENOFER [Concomitant]
     Active Substance: IRON SUCROSE
     Indication: Iron deficiency anaemia
     Dosage: 200 MG, WEEKLY
     Route: 042
     Dates: start: 20181029
  33. IPRATROPIUM [Concomitant]
     Active Substance: IPRATROPIUM
     Indication: Chronic obstructive pulmonary disease
     Dosage: 18 MG, QD
     Dates: start: 20130531

REACTIONS (3)
  - Acute respiratory failure [Recovered/Resolved]
  - Chronic obstructive pulmonary disease [Recovered/Resolved]
  - Palpitations [Unknown]

NARRATIVE: CASE EVENT DATE: 20181016
